FAERS Safety Report 22155785 (Version 1)
Quarter: 2023Q1

REPORT INFORMATION
  Report Type: Spontaneous
  Country: DE (occurrence: None)
  Receive Date: 20230330
  Receipt Date: 20230330
  Transmission Date: 20230418
  Serious: Yes (Other)
  Sender: FDA-Public Use
  Company Number: DE-ROCHE-3283528

PATIENT
  Age: 33 Year
  Sex: Female

DRUGS (1)
  1. OCREVUS [Suspect]
     Active Substance: OCRELIZUMAB
     Indication: Relapsing-remitting multiple sclerosis
     Route: 065
     Dates: start: 2016

REACTIONS (1)
  - Actinic keratosis [Not Recovered/Not Resolved]

NARRATIVE: CASE EVENT DATE: 20230201
